FAERS Safety Report 9978774 (Version 1)
Quarter: 2014Q1

REPORT INFORMATION
  Report Type: Report from Study
  Country: US (occurrence: US)
  Receive Date: 20140306
  Receipt Date: 20140306
  Transmission Date: 20141002
  Serious: No
  Sender: FDA-Public Use
  Company Number: US-ABBVIE-13P-163-1172210-00

PATIENT
  Age: 51 Year
  Sex: Male
  Weight: 79 kg

DRUGS (6)
  1. HUMIRA [Suspect]
     Indication: CROHN^S DISEASE
     Dates: start: 201307, end: 201307
  2. HUMIRA [Suspect]
     Dates: start: 2013, end: 2013
  3. HUMIRA [Suspect]
     Dates: start: 2013, end: 201310
  4. HUMIRA [Suspect]
     Dates: start: 201310
  5. PREDNISONE [Concomitant]
     Indication: CROHN^S DISEASE
  6. MERCAPTOPURIN [Concomitant]
     Indication: CROHN^S DISEASE

REACTIONS (2)
  - Crohn^s disease [Recovering/Resolving]
  - Diarrhoea [Recovering/Resolving]
